FAERS Safety Report 19429329 (Version 5)
Quarter: 2021Q3

REPORT INFORMATION
  Report Type: Report from Study
  Country: US (occurrence: US)
  Receive Date: 20210617
  Receipt Date: 20210923
  Transmission Date: 20211014
  Serious: No
  Sender: FDA-Public Use
  Company Number: NVSC2021US113344

PATIENT
  Age: 79 Year
  Sex: Male

DRUGS (1)
  1. ENTRESTO [Suspect]
     Active Substance: SACUBITRIL\VALSARTAN
     Indication: PRODUCT USED FOR UNKNOWN INDICATION
     Dosage: 50 MG, BID (24/ 26 MG)
     Route: 048
     Dates: start: 202105

REACTIONS (5)
  - COVID-19 [Recovering/Resolving]
  - Cough [Recovering/Resolving]
  - Decreased activity [Not Recovered/Not Resolved]
  - Throat clearing [Recovering/Resolving]
  - Incorrect product formulation administered [Unknown]

NARRATIVE: CASE EVENT DATE: 202108
